FAERS Safety Report 7599492-9 (Version None)
Quarter: 2011Q3

REPORT INFORMATION
  Report Type: 
  Country: None (occurrence: None)
  Receive Date: 20110711
  Receipt Date: 20080829
  Transmission Date: 20111222
  Serious: Yes (Other)
  Sender: FDA-Public Use
  Company Number: US-BAYER-200825382NA

PATIENT
  Age: 43 Year
  Sex: Female
  Weight: 70.748 kg

DRUGS (22)
  1. PANCRELIPASE [Concomitant]
  2. LEVOTHYROXINE SODIUM [Concomitant]
  3. COUMADIN [Concomitant]
  4. OMNISCAN [Suspect]
     Indication: ANGIOGRAM
     Dosage: UNK, ONCE
     Dates: start: 20050523, end: 20050523
  5. OMNISCAN [Suspect]
     Dosage: 15 ML, ONCE
     Dates: start: 20060524, end: 20060524
  6. SENSIPAR [Concomitant]
  7. OMNISCAN [Suspect]
     Indication: NUCLEAR MAGNETIC RESONANCE IMAGING
     Dosage: UNK, ONCE
     Dates: start: 20040316, end: 20040316
  8. PROHANCE [Suspect]
     Indication: NUCLEAR MAGNETIC RESONANCE IMAGING
  9. NEURONTIN [Concomitant]
  10. OPTIMARK [Suspect]
     Indication: NUCLEAR MAGNETIC RESONANCE IMAGING
  11. MULTIHANCE [Suspect]
     Indication: NUCLEAR MAGNETIC RESONANCE IMAGING
  12. FOSRENOL [Concomitant]
  13. PROCRIT [Concomitant]
  14. ATACAND [Concomitant]
  15. CARDIZEM [Concomitant]
  16. EPOGEN [Concomitant]
  17. PERCOCET [Concomitant]
  18. MAGNEVIST [Suspect]
     Indication: NUCLEAR MAGNETIC RESONANCE IMAGING
  19. OMNISCAN [Suspect]
     Indication: VENOGRAM
     Dosage: UNK, ONCE
     Dates: start: 20040811, end: 20040811
  20. METOPROLOL TARTRATE [Concomitant]
  21. DARVOCET [Concomitant]
  22. FERROUS SULFATE TAB [Concomitant]

REACTIONS (20)
  - SCAR [None]
  - SKIN INDURATION [None]
  - FIBROSIS [None]
  - DIZZINESS [None]
  - NEPHROGENIC SYSTEMIC FIBROSIS [None]
  - MOBILITY DECREASED [None]
  - ARTHRALGIA [None]
  - BONE PAIN [None]
  - INJURY [None]
  - HYPOAESTHESIA [None]
  - OEDEMA PERIPHERAL [None]
  - ANXIETY [None]
  - SKIN ATROPHY [None]
  - MUSCULAR WEAKNESS [None]
  - JOINT CONTRACTURE [None]
  - GENERAL PHYSICAL HEALTH DETERIORATION [None]
  - MUSCLE CONTRACTURE [None]
  - JOINT STIFFNESS [None]
  - PAIN [None]
  - SKIN HYPERTROPHY [None]
